FAERS Safety Report 16188673 (Version 1)
Quarter: 2019Q2

REPORT INFORMATION
  Report Type: Spontaneous
  Country: DE (occurrence: DE)
  Receive Date: 20190412
  Receipt Date: 20190412
  Transmission Date: 20190711
  Serious: Yes (Other)
  Sender: FDA-Public Use
  Company Number: DE-UNICHEM PHARMACEUTICALS (USA) INC-UCM201904-000124

PATIENT
  Age: 60 Year
  Sex: Male

DRUGS (18)
  1. TOPIRAMATE. [Suspect]
     Active Substance: TOPIRAMATE
  2. BRIVARACETAM [Suspect]
     Active Substance: BRIVARACETAM
     Dosage: MDD 150 MG
  3. CLONAZEPAM. [Concomitant]
     Active Substance: CLONAZEPAM
     Dosage: 2 MG/D
  4. CLONAZEPAM. [Concomitant]
     Active Substance: CLONAZEPAM
     Dosage: UP TO 1.5 MG/D
  5. PIRACETAM [Concomitant]
     Active Substance: PIRACETAM
     Dosage: MDD 2400 MG
  6. CANNABIDIOL [Concomitant]
     Active Substance: CANNABIDIOL
  7. DIVALPROEX SODIUM. [Suspect]
     Active Substance: DIVALPROEX SODIUM
     Indication: POST-ANOXIC MYOCLONUS
  8. LAMOTRIGINE. [Suspect]
     Active Substance: LAMOTRIGINE
  9. LEVETIRACETAM. [Suspect]
     Active Substance: LEVETIRACETAM
     Dosage: 500 MG/D
  10. PERAMPANEL [Concomitant]
     Active Substance: PERAMPANEL
     Dosage: 2 MG/D OR 4 MG/D ON ALTERNATE DAYS
  11. DRONABINOL. [Concomitant]
     Active Substance: DRONABINOL
     Dosage: 20 DROPS/D (EQUIVALENT TO 17.5 MG/D) OF DRONABINOL (DELTA-9 THC)
  12. LEVETIRACETAM. [Suspect]
     Active Substance: LEVETIRACETAM
     Dosage: MAXIMUM DAILY DOSE 1500 MG
  13. DRONABINOL. [Concomitant]
     Active Substance: DRONABINOL
     Dosage: UP TO 30 DROPS/D, EQUIVALENT TO 26.3 MG/D
  14. ZONISAMIDE. [Suspect]
     Active Substance: ZONISAMIDE
  15. ESLICARBAZEPINE [Suspect]
     Active Substance: ESLICARBAZEPINE
  16. PERAMPANEL [Concomitant]
     Active Substance: PERAMPANEL
     Dosage: MDD OF 8 MG
  17. PREGABALIN. [Suspect]
     Active Substance: PREGABALIN
  18. GABAPENTIN. [Concomitant]
     Active Substance: GABAPENTIN

REACTIONS (6)
  - Parkinsonism [Unknown]
  - Dystonia [Unknown]
  - Nausea [Unknown]
  - Vomiting [Unknown]
  - Rash [Unknown]
  - Treatment failure [Unknown]
